FAERS Safety Report 12325378 (Version 2)
Quarter: 2016Q3

REPORT INFORMATION
  Report Type: Report from Study
  Country: GB (occurrence: GB)
  Receive Date: 20160502
  Receipt Date: 20160708
  Transmission Date: 20161109
  Serious: Yes (Life-Threatening)
  Sender: FDA-Public Use
  Company Number: GB-ASTRAZENECA-2015SE07237

PATIENT
  Age: 20713 Day
  Sex: Female

DRUGS (6)
  1. AZD2281 [Suspect]
     Active Substance: OLAPARIB
     Indication: OVARIAN CANCER
     Dosage: 3000 MG
     Route: 048
     Dates: start: 20140602, end: 20140727
  2. ANTIOCIDANT [Concomitant]
     Indication: NUTRITIONAL SUPPLEMENTATION
     Route: 048
     Dates: start: 20130901
  3. METOCLOPRAMIDE. [Concomitant]
     Active Substance: METOCLOPRAMIDE
     Indication: NAUSEA
     Dosage: 10.0MG AS REQUIRED
     Route: 048
  4. AMLODIPIN [Concomitant]
     Active Substance: AMLODIPINE BESYLATE
     Indication: HYPERTENSION
     Route: 048
  5. CETIRIZINE [Concomitant]
     Active Substance: CETIRIZINE HYDROCHLORIDE
     Indication: PRURITUS
     Route: 048
     Dates: start: 20141208
  6. AZD2281 [Suspect]
     Active Substance: OLAPARIB
     Indication: OVARIAN CANCER
     Dosage: 3000 MG
     Route: 048
     Dates: start: 20140804, end: 20140831

REACTIONS (1)
  - Myelodysplastic syndrome [Not Recovered/Not Resolved]

NARRATIVE: CASE EVENT DATE: 20150105
